FAERS Safety Report 6563215-2 (Version None)
Quarter: 2010Q1

REPORT INFORMATION
  Report Type: 
  Country: None (occurrence: None)
  Receive Date: 20100130
  Receipt Date: 20091204
  Transmission Date: 20100710
  Serious: No
  Sender: FDA-Public Use
  Company Number: US-ABBOTT-09P-163-0613182-00

PATIENT
  Sex: Female

DRUGS (4)
  1. HUMIRA [Suspect]
     Indication: RHEUMATOID ARTHRITIS
     Route: 058
     Dates: start: 20091008
  2. UNKNOWN SLEEP MEDICATION [Concomitant]
     Indication: SLEEP DISORDER
  3. UNKNOWN PAIN MEDICATIONS [Concomitant]
     Indication: SYSTEMIC LUPUS ERYTHEMATOSUS
  4. UNKNOWN PAIN MEDICATIONS [Concomitant]
     Indication: MYALGIA

REACTIONS (2)
  - GAIT DISTURBANCE [None]
  - MUSCLE SPASMS [None]
